FAERS Safety Report 19710195 (Version 2)
Quarter: 2021Q4

REPORT INFORMATION
  Report Type: Spontaneous
  Country: SA (occurrence: SA)
  Receive Date: 20210817
  Receipt Date: 20211008
  Transmission Date: 20220304
  Serious: Yes (Death, Life-Threatening, Hospitalization, Disabling, Other)
  Sender: FDA-Public Use
  Company Number: SA-ALXN-A202109127

PATIENT
  Age: 1 Year
  Sex: Male

DRUGS (1)
  1. KANUMA [Suspect]
     Active Substance: SEBELIPASE ALFA
     Indication: Lysosomal acid lipase deficiency
     Dosage: 1 MG/KG , Q2W
     Route: 042
     Dates: start: 202008

REACTIONS (1)
  - Gastroenteritis [Fatal]
